FAERS Safety Report 13981731 (Version 1)
Quarter: 2017Q3

REPORT INFORMATION
  Report Type: Spontaneous
  Country: US (occurrence: US)
  Receive Date: 20170918
  Receipt Date: 20170918
  Transmission Date: 20171128
  Serious: No
  Sender: FDA-Public Use
  Company Number: US-BION-006429

PATIENT
  Age: 41 Year
  Sex: Male
  Weight: 97.52 kg

DRUGS (1)
  1. ZYRTEC [Suspect]
     Active Substance: CETIRIZINE HYDROCHLORIDE
     Indication: HYPERSENSITIVITY
     Dosage: 1 LIQUID GEL ONLY ONCE
     Route: 048
     Dates: start: 20170612

REACTIONS (1)
  - Drug ineffective [Not Recovered/Not Resolved]
